FAERS Safety Report 13798311 (Version 1)
Quarter: 2017Q3

REPORT INFORMATION
  Report Type: Spontaneous
  Country: AU (occurrence: AU)
  Receive Date: 20170727
  Receipt Date: 20170727
  Transmission Date: 20171127
  Serious: Yes (Other)
  Sender: FDA-Public Use
  Company Number: AU-BAXTER-2017BAX028828

PATIENT

DRUGS (12)
  1. SODIUM CHLORIDE 4MMOL/ML [Suspect]
     Active Substance: SODIUM CHLORIDE
     Indication: PARENTERAL NUTRITION
     Route: 065
  2. GLUCOSE 70% [Suspect]
     Active Substance: DEXTROSE
     Indication: PARENTERAL NUTRITION
     Route: 065
  3. POTASSIUM ACETATE 5MMOL/ML [Suspect]
     Active Substance: POTASSIUM ACETATE
     Indication: PARENTERAL NUTRITION
     Route: 065
  4. MAGNESIUM SULFATE 2MMOL/ML [Suspect]
     Active Substance: MAGNESIUM SULFATE
     Indication: PARENTERAL NUTRITION
     Route: 065
  5. [PSS GPN] SELENIUM 30MCG/ML [Suspect]
     Active Substance: SELENIUM
     Indication: PARENTERAL NUTRITION
     Route: 065
  6. CALCIUM CHLORIDE 1MMOL/ML [Suspect]
     Active Substance: CALCIUM CHLORIDE
     Indication: PARENTERAL NUTRITION
     Route: 065
  7. SODUM ACETATE [Suspect]
     Active Substance: SODIUM ACETATE ANHYDROUS
     Indication: PARENTERAL NUTRITION
     Route: 065
  8. POTASSIUM DI-H PHOSPHATE 1MMOL/ML [Suspect]
     Active Substance: POTASSIUM PHOSPHATE, MONOBASIC
     Indication: PARENTERAL NUTRITION
     Route: 065
  9. WATER FOR INJECTION [Suspect]
     Active Substance: WATER
     Indication: PARENTERAL NUTRITION
     Route: 065
  10. SYNTHAMIN [Suspect]
     Active Substance: AMINO ACIDS
     Indication: PARENTERAL NUTRITION
     Route: 065
  11. [PSS GPN]CHROMIUM 3.2MCG/ML [Suspect]
     Active Substance: CHROMIC CHLORIDE
     Indication: PARENTERAL NUTRITION
     Route: 065
  12. MULTIPLE TRACE ELEMENTS WITH IRON, 500 ML NPVC MONOBAG [Suspect]
     Active Substance: MINERALS
     Indication: PARENTERAL NUTRITION
     Route: 065

REACTIONS (1)
  - Sepsis [Unknown]

NARRATIVE: CASE EVENT DATE: 20170720
